FAERS Safety Report 4485301-3 (Version None)
Quarter: 2004Q3

REPORT INFORMATION
  Report Type: 
  Country: None (occurrence: None)
  Receive Date: 20040921
  Receipt Date: 20040512
  Transmission Date: 20050211
  Serious: Yes (Death)
  Sender: FDA-Public Use
  Company Number: 163-20785-04050317

PATIENT
  Age: 60 Year
  Sex: Male

DRUGS (39)
  1. THALOMID [Suspect]
     Indication: MULTIPLE MYELOMA
     Dosage: 400 MG, DAILY, ORAL
     Route: 048
     Dates: start: 20020314, end: 20020509
  2. VINCRISTINE [Suspect]
     Indication: MULTIPLE MYELOMA
     Dates: start: 20020301, end: 20020101
  3. ADRIAMYCIN PFS [Suspect]
     Indication: MULTIPLE MYELOMA
     Dates: start: 20020301, end: 20020101
  4. DEXAMETHASONE [Suspect]
     Indication: MULTIPLE MYELOMA
     Dates: start: 20020301, end: 20020101
  5. CYCLOPHOSPHAMIDE [Suspect]
     Indication: MULTIPLE MYELOMA
     Dates: start: 20020430, end: 20020101
  6. ETOPOSIDE [Suspect]
     Indication: MULTIPLE MYELOMA
     Dates: start: 20020430, end: 20020101
  7. CISPLATIN [Suspect]
     Indication: MULTIPLE MYELOMA
     Dates: start: 20020430, end: 20020101
  8. SOLU-MEDROL [Concomitant]
  9. FOSCARNET [Concomitant]
  10. COUMADIN [Concomitant]
  11. FLOMAX [Concomitant]
  12. CYCLOSPORIN (CYCLOSERINE) [Concomitant]
  13. MYCOPHENOLATE MOFETIL (MYCOPHENOLAET MOFETIL) [Concomitant]
  14. AMBISOME [Concomitant]
  15. VORICONAZOLE (VORICONAZOLE) [Concomitant]
  16. NYSTATIN [Concomitant]
  17. METHYLPREDNISOLONE [Concomitant]
  18. TEQUIN [Concomitant]
  19. BACTRIM DS (BACTRIM) (TABLETS) [Concomitant]
  20. PEPCID AC [Concomitant]
  21. MULTIVITAMIN [Concomitant]
  22. FOLATE (FOLATE SODIUM) [Concomitant]
  23. AMPHOTERICIN B [Concomitant]
  24. CALCIUM CARBONATE (CALCIUM CARBONATE) [Concomitant]
  25. PROCRIT [Concomitant]
  26. K-DUR 10 [Concomitant]
  27. MAGNESIUM OXIDE (MAGNESIUM OXIDE) [Concomitant]
  28. NEUTRA-PHOS (NEUTRA-PHOS) [Concomitant]
  29. IMIQUIMOD CREAM (IMIQUIMOD) [Concomitant]
  30. XYLOCAINE [Concomitant]
  31. METAMUCIL (METAMUCIL ^PROCTER + GAMBLE^) [Concomitant]
  32. POLYSPORIN (POLYSPORIN DROPS) (OINTMENT) [Concomitant]
  33. XENADERM [Concomitant]
  34. CARAFATE [Concomitant]
  35. MAGNESIUM OXIDE (MAGNESIUM OXIDE) [Concomitant]
  36. ACYCLOVIR [Concomitant]
  37. REGLAN [Concomitant]
  38. FLAGYL [Concomitant]
  39. AREDIA [Concomitant]

REACTIONS (3)
  - DEATH [None]
  - GRAFT VERSUS HOST DISEASE [None]
  - PULMONARY EMBOLISM [None]
